FAERS Safety Report 7522080-7 (Version None)
Quarter: 2011Q2

REPORT INFORMATION
  Report Type: 
  Country: None (occurrence: None)
  Receive Date: 20110520
  Receipt Date: 20110506
  Transmission Date: 20111010
  Serious: Yes (Other)
  Sender: FDA-Public Use
  Company Number: 2011028626

PATIENT
  Age: 57 Year
  Sex: Female
  Weight: 68.0396 kg

DRUGS (10)
  1. PAXIL [Concomitant]
  2. HIZENTRA [Suspect]
     Indication: IMMUNODEFICIENCY COMMON VARIABLE
     Dosage: SEE IMAGE
     Route: 058
     Dates: start: 20110318
  3. HIZENTRA [Suspect]
  4. TOPROL-XL [Concomitant]
  5. PREDNISONE [Concomitant]
  6. NORVASC [Concomitant]
  7. RESTASIS (CICLOSPORIN) [Concomitant]
  8. KLONOPIN [Concomitant]
  9. DOXYCYCLINE [Concomitant]
  10. ASTELIN (DIPROPHYLLINE) [Concomitant]

REACTIONS (2)
  - UPPER RESPIRATORY TRACT INFECTION [None]
  - CYSTITIS [None]
